FAERS Safety Report 23445855 (Version 1)
Quarter: 2024Q1

REPORT INFORMATION
  Report Type: Report from Study
  Country: GB (occurrence: GB)
  Receive Date: 20240126
  Receipt Date: 20240126
  Transmission Date: 20240409
  Serious: Yes (Death, Other)
  Sender: FDA-Public Use
  Company Number: GB-TAKEDA-2023TUS009073

PATIENT
  Sex: Male

DRUGS (1)
  1. VEDOLIZUMAB [Suspect]
     Active Substance: VEDOLIZUMAB
     Indication: Dermatitis atopic
     Dosage: 108 MILLIGRAM
     Route: 058
     Dates: start: 202211, end: 202401

REACTIONS (4)
  - Death [Fatal]
  - Off label use [Unknown]
  - Headache [Unknown]
  - Arthralgia [Unknown]
